FAERS Safety Report 7036331-9 (Version None)
Quarter: 2010Q4

REPORT INFORMATION
  Report Type: 
  Country: None (occurrence: None)
  Receive Date: 20101008
  Receipt Date: 20100930
  Transmission Date: 20110411
  Serious: Yes (Other)
  Sender: FDA-Public Use
  Company Number: ZA-ABBOTT-10P-143-0674885-00

PATIENT
  Age: 9 Year
  Sex: Female

DRUGS (1)
  1. ULTANE [Suspect]
     Indication: INDUCTION OF ANAESTHESIA
     Route: 055
     Dates: start: 20100929, end: 20100929

REACTIONS (2)
  - LARYNGOSPASM [None]
  - MUSCLE RIGIDITY [None]
